FAERS Safety Report 8542391-6 (Version None)
Quarter: 2012Q3

REPORT INFORMATION
  Report Type: 
  Country: None (occurrence: None)
  Receive Date: 20120726
  Receipt Date: 20110922
  Transmission Date: 20120928
  Serious: Yes (Other)
  Sender: FDA-Public Use
  Company Number: US-ASTRAZENECA-2011SE56906

PATIENT
  Sex: Female

DRUGS (5)
  1. SEROQUEL XR [Suspect]
     Indication: BIPOLAR DISORDER
     Route: 048
  2. DILANTIN [Concomitant]
  3. LORAZEPAM [Concomitant]
  4. LEVOTHYROXINE SODIUM [Concomitant]
     Indication: THYROID DISORDER
  5. CLONIDINE [Concomitant]

REACTIONS (5)
  - SUICIDAL IDEATION [None]
  - INSOMNIA [None]
  - TACHYPHRENIA [None]
  - ANXIETY [None]
  - DRUG DOSE OMISSION [None]
